FAERS Safety Report 13866979 (Version 7)
Quarter: 2018Q4

REPORT INFORMATION
  Report Type: Spontaneous
  Country: US (occurrence: US)
  Receive Date: 20170814
  Receipt Date: 20181228
  Transmission Date: 20190204
  Serious: Yes (Disabling, Other)
  Sender: FDA-Public Use
  Company Number: PHEH2017US024705

PATIENT
  Sex: Female

DRUGS (3)
  1. HYALURONIC ACID [Concomitant]
     Active Substance: HYALURONIC ACID
     Indication: PRODUCT USED FOR UNKNOWN INDICATION
     Route: 065
  2. HYDROCORTISONE. [Concomitant]
     Active Substance: HYDROCORTISONE
     Indication: PRODUCT USED FOR UNKNOWN INDICATION
     Route: 065
  3. MAXITROL [Suspect]
     Active Substance: DEXAMETHASONE\NEOMYCIN SULFATE\POLYMYXIN B SULFATE
     Indication: PRODUCT USED FOR UNKNOWN INDICATION
     Route: 065

REACTIONS (30)
  - General physical health deterioration [Unknown]
  - Vision blurred [Unknown]
  - Nasal discomfort [Unknown]
  - Agitation [Unknown]
  - Alopecia [Unknown]
  - Dysstasia [Unknown]
  - Eye discharge [Unknown]
  - Headache [Unknown]
  - Stress [Unknown]
  - Head injury [Unknown]
  - Suicidal ideation [Unknown]
  - Fall [Unknown]
  - Dyspnoea [Unknown]
  - Diplegia [Unknown]
  - Emotional distress [Unknown]
  - Foreign body in respiratory tract [Unknown]
  - Localised infection [Unknown]
  - Haemorrhage [Unknown]
  - Speech disorder [Unknown]
  - Crying [Unknown]
  - Malaise [Unknown]
  - Visual impairment [Unknown]
  - Product physical consistency issue [Unknown]
  - Deformity [Not Recovered/Not Resolved]
  - Hyperthyroidism [Unknown]
  - Hand fracture [Unknown]
  - Blood pressure increased [Unknown]
  - Blindness [Unknown]
  - Face injury [Unknown]
  - Nose deformity [Unknown]
